FAERS Safety Report 15449343 (Version 2)
Quarter: 2018Q4

REPORT INFORMATION
  Report Type: Spontaneous
  Country: DE (occurrence: DE)
  Receive Date: 20181001
  Receipt Date: 20181003
  Transmission Date: 20190204
  Serious: Yes (Other)
  Sender: FDA-Public Use
  Company Number: DE-BEH-2018092228

PATIENT
  Sex: Male

DRUGS (1)
  1. HAEMATE P [Suspect]
     Active Substance: ANTIHEMOPHILIC FACTOR HUMAN
     Indication: HAEMORRHAGE
     Dosage: UNK
     Route: 065
     Dates: start: 20180618

REACTIONS (2)
  - Drug ineffective [Unknown]
  - Von Willebrand^s factor antibody positive [Unknown]

NARRATIVE: CASE EVENT DATE: 201806
